FAERS Safety Report 5495548-5 (Version None)
Quarter: 2007Q4

REPORT INFORMATION
  Report Type: 
  Country: None (occurrence: None)
  Receive Date: 20071015
  Receipt Date: 20061116
  Transmission Date: 20080405
  Serious: Yes (Hospitalization, Other)
  Sender: FDA-Public Use
  Company Number: S06-USA-04854-01

PATIENT
  Age: 58 Year
  Sex: Female
  Weight: 73.9363 kg

DRUGS (5)
  1. LEXAPRO [Suspect]
     Indication: DEPRESSION
     Dosage: 50 MG QD PO
     Route: 048
     Dates: start: 20030909, end: 20060922
  2. ALEVE [Suspect]
     Indication: HEADACHE
     Dates: end: 20060901
  3. EXCEDRIN                               (ASPIRIN, ACETAMINOPHEN AND CAF [Suspect]
     Indication: HEADACHE
     Dates: end: 20060901
  4. BUSPAR [Concomitant]
  5. TRAZODONE HCL [Concomitant]

REACTIONS (6)
  - CONSTIPATION [None]
  - HEADACHE [None]
  - HYPERTENSION [None]
  - NEPHROLITHIASIS [None]
  - RENAL FAILURE [None]
  - SINUSITIS [None]
